FAERS Safety Report 12718742 (Version 1)
Quarter: 2016Q3

REPORT INFORMATION
  Report Type: Spontaneous
  Country: MX (occurrence: MX)
  Receive Date: 20160906
  Receipt Date: 20160906
  Transmission Date: 20161109
  Serious: Yes (Other)
  Sender: FDA-Public Use
  Company Number: MX-BIOMARINAP-MX-2016-110995

PATIENT
  Age: 21 Year
  Sex: Female
  Weight: 54 kg

DRUGS (1)
  1. ALDURAZYME [Suspect]
     Active Substance: LARONIDASE
     Indication: MUCOPOLYSACCHARIDOSIS
     Dosage: UNK UNK, QW
     Route: 042
     Dates: start: 20100422

REACTIONS (1)
  - Lumbar vertebral fracture [Recovered/Resolved]

NARRATIVE: CASE EVENT DATE: 2014
